FAERS Safety Report 6265780-1 (Version None)
Quarter: 2009Q3

REPORT INFORMATION
  Report Type: 
  Country: None (occurrence: None)
  Receive Date: 20090709
  Receipt Date: 20090709
  Transmission Date: 20100115
  Serious: Yes (Life-Threatening, Disabling)
  Sender: FDA-Public Use
  Company Number: None

PATIENT
  Sex: Male
  Weight: 81.6475 kg

DRUGS (1)
  1. MIRAPEX [Suspect]
     Indication: PARKINSON'S DISEASE
     Dosage: 0.25 MG 3 PO
     Route: 048
     Dates: start: 20050622, end: 20071231

REACTIONS (2)
  - ABNORMAL BEHAVIOUR [None]
  - COMPULSIONS [None]
